FAERS Safety Report 7571072-0 (Version None)
Quarter: 2011Q2

REPORT INFORMATION
  Report Type: 
  Country: None (occurrence: None)
  Receive Date: 20110624
  Receipt Date: 20110620
  Transmission Date: 20111010
  Serious: Yes (Hospitalization)
  Sender: FDA-Public Use
  Company Number: US-ABBOTT-11P-163-0733907-00

PATIENT
  Sex: Female

DRUGS (6)
  1. AMITRIPTYLINE HCL [Concomitant]
     Indication: NEURALGIA
  2. HCTZ WITH DIAZIDE [Concomitant]
     Indication: HYPERTENSION
  3. HUMIRA [Suspect]
     Dates: start: 20090101
  4. HUMIRA [Suspect]
     Indication: RHEUMATOID ARTHRITIS
     Dates: start: 20080101, end: 20090101
  5. ATENOLOL [Concomitant]
     Indication: HYPERTENSION
  6. PROZAC [Concomitant]
     Indication: DEPRESSION

REACTIONS (3)
  - ARTHRITIS [None]
  - INJECTION SITE PAIN [None]
  - JOINT SWELLING [None]
